FAERS Safety Report 9844807 (Version 1)
Quarter: 2014Q1

REPORT INFORMATION
  Report Type: Spontaneous
  Country: US (occurrence: None)
  Receive Date: 20140123
  Receipt Date: 20140123
  Transmission Date: 20141002
  Serious: No
  Sender: FDA-Public Use
  Company Number: None

PATIENT
  Age: 48 Year
  Sex: Female
  Weight: 74.84 kg

DRUGS (2)
  1. FLUCONAZOLE [Suspect]
     Indication: FUNGAL INFECTION
     Route: 048
     Dates: start: 20130804, end: 20130830
  2. FLUCONAZOLE [Suspect]
     Indication: CANDIDA INFECTION
     Route: 048
     Dates: start: 20130804, end: 20130830

REACTIONS (3)
  - Alopecia [None]
  - Fatigue [None]
  - Asthenia [None]
